FAERS Safety Report 8180121-0 (Version None)
Quarter: 2012Q1

REPORT INFORMATION
  Report Type: 
  Country: None (occurrence: None)
  Receive Date: 20120229
  Receipt Date: 20120215
  Transmission Date: 20120608
  Serious: Yes (Other)
  Sender: FDA-Public Use
  Company Number: 2012P1003604

PATIENT
  Age: 33 Year
  Sex: Female

DRUGS (2)
  1. FENTANYL [Suspect]
     Dosage: 100 MCG, IV
     Route: 042
  2. ATRACURIUM BESYLATE [Suspect]
     Indication: GENERAL ANAESTHESIA
     Dosage: 40 MG, IV
     Route: 042
     Dates: start: 20120110, end: 20120110

REACTIONS (1)
  - BRONCHOSPASM [None]
